FAERS Safety Report 21144133 (Version 2)
Quarter: 2022Q3

REPORT INFORMATION
  Report Type: Spontaneous
  Country: SE (occurrence: SE)
  Receive Date: 20220728
  Receipt Date: 20220826
  Transmission Date: 20221027
  Serious: Yes (Hospitalization, Other)
  Sender: FDA-Public Use
  Company Number: SE-NOVARTISPH-NVSC2022SE166578

PATIENT
  Age: 15 Year
  Sex: Female

DRUGS (3)
  1. OLANZAPINE [Suspect]
     Active Substance: OLANZAPINE
     Indication: Hallucination
     Dosage: 2.5 MG, QD
     Route: 065
  2. OLANZAPINE [Suspect]
     Active Substance: OLANZAPINE
     Indication: Anxiety
     Dosage: 5 MG, QD (INCREASED)
     Route: 065
  3. OLANZAPINE [Suspect]
     Active Substance: OLANZAPINE
     Dosage: 2.5 MG, QD (REDUCED BACK TO 2.5 MG)
     Route: 065

REACTIONS (4)
  - Hyperthermia [Recovering/Resolving]
  - Rhabdomyolysis [Recovering/Resolving]
  - Pneumonia aspiration [Recovered/Resolved]
  - Product use issue [Unknown]
